FAERS Safety Report 9999232 (Version 2)
Quarter: 2014Q1

REPORT INFORMATION
  Report Type: Spontaneous
  Country: US (occurrence: US)
  Receive Date: 20140312
  Receipt Date: 20140331
  Transmission Date: 20141002
  Serious: Yes (Hospitalization)
  Sender: FDA-Public Use
  Company Number: US-JNJFOC-20140302916

PATIENT
  Age: 70 Year
  Sex: Male

DRUGS (7)
  1. XARELTO [Suspect]
     Indication: DEEP VEIN THROMBOSIS
     Route: 048
     Dates: end: 20140303
  2. XARELTO [Suspect]
     Indication: DEEP VEIN THROMBOSIS
     Route: 048
     Dates: end: 201311
  3. LISINOPRIL [Concomitant]
     Indication: HYPERTENSION
     Route: 065
  4. PRAVASTATIN [Concomitant]
     Indication: BLOOD CHOLESTEROL INCREASED
     Route: 065
  5. KEPPRA [Concomitant]
     Indication: CONVULSION
     Dosage: 500 (UNSPECIFIED UNITS)
     Route: 065
  6. ZONISAMIDE [Concomitant]
     Indication: CONVULSION
     Route: 065
  7. PRILOSEC [Concomitant]
     Indication: GASTROOESOPHAGEAL REFLUX DISEASE
     Route: 065

REACTIONS (2)
  - Deep vein thrombosis [Recovered/Resolved]
  - Treatment failure [Unknown]
